FAERS Safety Report 20075874 (Version 1)
Quarter: 2021Q4

REPORT INFORMATION
  Report Type: Spontaneous
  Country: BR (occurrence: BR)
  Receive Date: 20211116
  Receipt Date: 20211116
  Transmission Date: 20220303
  Serious: Yes (Hospitalization, Other)
  Sender: FDA-Public Use
  Company Number: BR-HBP-2021BR023867

PATIENT
  Age: 86 Year
  Sex: Female
  Weight: 78 kg

DRUGS (8)
  1. PALONOSETRON HYDROCHLORIDE [Suspect]
     Active Substance: PALONOSETRON HYDROCHLORIDE
     Indication: Chemotherapy side effect prophylaxis
     Dosage: UNK, UNKNOWN
     Route: 042
     Dates: start: 20201123, end: 20201123
  2. EMEND [Suspect]
     Active Substance: APREPITANT
     Indication: Chemotherapy side effect prophylaxis
     Dosage: UNK, UNKNOWN
     Route: 042
     Dates: start: 20201123, end: 20201123
  3. DEXAMETHASONE [Suspect]
     Active Substance: DEXAMETHASONE
     Indication: Chemotherapy side effect prophylaxis
     Dosage: UNK, UNKNOWN
     Route: 042
     Dates: start: 20201123, end: 20201123
  4. GENUXAL [Suspect]
     Active Substance: CYCLOPHOSPHAMIDE
     Indication: Non-Hodgkin^s lymphoma
     Dosage: 1395 MILLIGRAM, QD
     Route: 042
     Dates: start: 20201123, end: 20201123
  5. TYLENOL [Suspect]
     Active Substance: ACETAMINOPHEN
     Indication: Chemotherapy side effect prophylaxis
     Dosage: UNK, UNKNOWN
     Route: 048
     Dates: start: 20201123, end: 20201123
  6. DIPHENHYDRAMINE HYDROCHLORIDE [Suspect]
     Active Substance: DIPHENHYDRAMINE HYDROCHLORIDE
     Indication: Chemotherapy side effect prophylaxis
     Dosage: UNK, UNKNOWN
     Route: 042
     Dates: start: 20201123, end: 20201123
  7. MABTHERA [Suspect]
     Active Substance: RITUXIMAB
     Indication: Non-Hodgkin^s lymphoma
     Dosage: 697 MILLIGRAM, QD
     Route: 065
     Dates: start: 20201123, end: 20201123
  8. VINCRISTINE SULFATE [Suspect]
     Active Substance: VINCRISTINE SULFATE
     Indication: Non-Hodgkin^s lymphoma
     Dosage: 2 MILLIGRAM, QD
     Route: 065
     Dates: start: 20201123, end: 20201123

REACTIONS (8)
  - Dyskinesia [Recovered/Resolved]
  - Haematuria [Recovered/Resolved]
  - Cystitis haemorrhagic [Recovered/Resolved]
  - Oxygen saturation decreased [Recovered/Resolved]
  - Potentiating drug interaction [Recovered/Resolved]
  - Urinary retention [Recovered/Resolved]
  - Hypotension [Recovered/Resolved]
  - Somnolence [Recovered/Resolved]

NARRATIVE: CASE EVENT DATE: 20201123
